FAERS Safety Report 7483752-6 (Version None)
Quarter: 2011Q2

REPORT INFORMATION
  Report Type: 
  Country: None (occurrence: None)
  Receive Date: 20110509
  Receipt Date: 20110425
  Transmission Date: 20111010
  Serious: Yes (Hospitalization)
  Sender: FDA-Public Use
  Company Number: JP-005201

PATIENT
  Sex: Male
  Weight: 61.5 kg

DRUGS (8)
  1. TRAVATAN Z [Suspect]
     Indication: GLAUCOMA
     Dosage: (OPHTHALMIC)
     Route: 047
     Dates: start: 20100101
  2. ADALAT [Suspect]
     Indication: HYPERTENSION
     Dosage: (40 MG QD ORAL)
     Route: 048
     Dates: start: 20090101
  3. ALLOPURINOL [Suspect]
     Indication: HYPERURICAEMIA
     Dosage: (100 MG BID ORAL)
     Route: 048
     Dates: start: 20090101
  4. BETOPTIC [Suspect]
     Indication: GLAUCOMA
     Dosage: (OPHTHALIMIC)
     Route: 047
     Dates: start: 20100101
  5. AZOPT [Suspect]
     Indication: GLAUCOMA
     Dosage: (OPHTHALMIC)
     Route: 047
     Dates: start: 20100101
  6. CANDESARTAN CILEXETIL [Suspect]
     Indication: HYPERTENSION
     Dosage: (2 MG QD ORAL)
     Route: 048
     Dates: start: 20100101
  7. FIRMAGON [Suspect]
     Indication: PROSTATE CANCER
     Dosage: (240 MG TOTAL SUBCUTANEOUS)
     Route: 058
     Dates: start: 20110331, end: 20110331
  8. KALLIDINOGENASE (CARNACULIN) [Suspect]
     Indication: GLAUCOMA
     Dosage: (50 IU TID ORAL)
     Route: 048
     Dates: start: 20090101

REACTIONS (2)
  - INTESTINAL HAEMORRHAGE [None]
  - HAEMATOCHEZIA [None]
